FAERS Safety Report 4623331-9 (Version None)
Quarter: 2005Q1

REPORT INFORMATION
  Report Type: 
  Country: None (occurrence: None)
  Receive Date: 20050330
  Receipt Date: 20050318
  Transmission Date: 20050727
  Serious: Yes (Hospitalization)
  Sender: FDA-Public Use
  Company Number: HK-MERCK-0503HKG00007

PATIENT
  Age: 24 Year
  Sex: Female

DRUGS (6)
  1. DECADRON [Suspect]
     Indication: DEXAMETHASONE SUPPRESSION TEST POSITIVE
     Route: 048
  2. DECADRON [Suspect]
     Route: 065
  3. CARBAMAZEPINE [Suspect]
     Indication: TEMPORAL LOBE EPILEPSY
     Route: 065
  4. ALPRAZOLAM [Concomitant]
     Indication: DEPRESSION
     Route: 065
  5. SERTRALINE HYDROCHLORIDE [Concomitant]
     Indication: DEPRESSION
     Route: 065
  6. PROPRANOLOL HYDROCHLORIDE [Concomitant]
     Indication: DEPRESSION
     Route: 065

REACTIONS (2)
  - DRUG INTERACTION [None]
  - DRUG SCREEN FALSE POSITIVE [None]
